FAERS Safety Report 8008973-5 (Version None)
Quarter: 2011Q4

REPORT INFORMATION
  Report Type: 
  Country: None (occurrence: None)
  Receive Date: 20111227
  Receipt Date: 20111221
  Transmission Date: 20120403
  Serious: Yes (Hospitalization, Other)
  Sender: FDA-Public Use
  Company Number: US-PFIZER INC-2011311609

PATIENT
  Sex: Male

DRUGS (7)
  1. DILANTIN [Suspect]
     Dosage: 2 TABLETS EVERY MORNING AND 4 TABLETS EVERY EVENING
     Route: 048
     Dates: start: 20031017, end: 20031023
  2. AMOXICILLIN [Concomitant]
     Dosage: UNK
  3. ZYRTEC [Concomitant]
     Dosage: 1 EVERY DAY
  4. RHINOCORT [Concomitant]
     Dosage: UNK
  5. ADVAIR DISKUS 100/50 [Concomitant]
     Dosage: UNK
  6. DILANTIN [Suspect]
     Indication: PARTIAL SEIZURES
     Dosage: 100 MG, UNK
     Dates: start: 20031004
  7. SINGULAIR [Concomitant]
     Dosage: EVERY DAY

REACTIONS (1)
  - STEVENS-JOHNSON SYNDROME [None]
